FAERS Safety Report 19272990 (Version 1)
Quarter: 2021Q2

REPORT INFORMATION
  Report Type: Report from Study
  Country: None (occurrence: US)
  Receive Date: 20210518
  Receipt Date: 20210518
  Transmission Date: 20210717
  Serious: Yes (Other)
  Sender: FDA-Public Use
  Company Number: US-ABBVIE-21K-163-3905091-00

PATIENT
  Age: 58 Year
  Sex: Female

DRUGS (2)
  1. SKYRIZI [Suspect]
     Active Substance: RISANKIZUMAB-RZAA
     Indication: PSORIASIS
     Dosage: 0.83ML
     Route: 058
     Dates: start: 202003, end: 202009
  2. SKYRIZI [Suspect]
     Active Substance: RISANKIZUMAB-RZAA
     Dosage: 0.83ML
     Route: 058
     Dates: start: 202102

REACTIONS (3)
  - Conjunctivitis [Recovering/Resolving]
  - Metabolic surgery [Unknown]
  - Headache [Unknown]

NARRATIVE: CASE EVENT DATE: 202011
